FAERS Safety Report 20492779 (Version 1)
Quarter: 2022Q1

REPORT INFORMATION
  Report Type: Report from Study
  Country: US (occurrence: US)
  Receive Date: 20220219
  Receipt Date: 20220219
  Transmission Date: 20220423
  Serious: Yes (Death, Other)
  Sender: FDA-Public Use
  Company Number: US-SHIRE-US202027667

PATIENT
  Age: 65 Year
  Sex: Male

DRUGS (2)
  1. LANADELUMAB [Suspect]
     Active Substance: LANADELUMAB
     Indication: Product used for unknown indication
     Dosage: 300 MILLIGRAM, OTHER
     Route: 058
     Dates: start: 202001
  2. LANADELUMAB [Suspect]
     Active Substance: LANADELUMAB
     Dosage: 300 MILLIGRAM, Q2WEEKS
     Route: 058

REACTIONS (3)
  - Death [Fatal]
  - Lung neoplasm malignant [Unknown]
  - Femur fracture [Unknown]

NARRATIVE: CASE EVENT DATE: 20211220
